FAERS Safety Report 6779426-7 (Version None)
Quarter: 2010Q2

REPORT INFORMATION
  Report Type: 
  Country: None (occurrence: None)
  Receive Date: 20100618
  Receipt Date: 20100607
  Transmission Date: 20101027
  Serious: Yes (Hospitalization)
  Sender: FDA-Public Use
  Company Number: CH-JNJFOC-20100602578

PATIENT
  Age: 65 Year
  Sex: Female

DRUGS (6)
  1. REMICADE [Suspect]
     Indication: ANKYLOSING SPONDYLITIS
     Route: 042
  2. REMICADE [Suspect]
     Route: 042
  3. METHOTREXATE [Concomitant]
     Indication: ANKYLOSING SPONDYLITIS
  4. BONIVA [Concomitant]
     Indication: OSTEOPOROSIS
     Route: 042
  5. PRINIVIL [Concomitant]
     Indication: HYPERTENSION
  6. FOLIC ACID [Concomitant]
     Indication: DRUG TOXICITY

REACTIONS (2)
  - HAEMATOMA [None]
  - MUSCLE RUPTURE [None]
